FAERS Safety Report 20822528 (Version 1)
Quarter: 2022Q2

REPORT INFORMATION
  Report Type: Spontaneous
  Country: CN (occurrence: CN)
  Receive Date: 20220512
  Receipt Date: 20220512
  Transmission Date: 20220721
  Serious: Yes (Hospitalization)
  Sender: FDA-Public Use
  Company Number: CN-BAYER-2022A066096

PATIENT
  Age: 87 Year
  Sex: Male
  Weight: 70 kg

DRUGS (1)
  1. XARELTO [Suspect]
     Active Substance: RIVAROXABAN
     Indication: Anticoagulant therapy
     Dosage: 10 MG, QD
     Route: 048
     Dates: end: 20220426

REACTIONS (11)
  - Upper gastrointestinal haemorrhage [Recovering/Resolving]
  - Abdominal discomfort [Recovering/Resolving]
  - Abdominal distension [Recovering/Resolving]
  - Decreased appetite [Recovering/Resolving]
  - Hypophagia [Recovering/Resolving]
  - Nausea [Recovering/Resolving]
  - Melaena [Recovering/Resolving]
  - Haematemesis [Recovering/Resolving]
  - Gastric disorder [Unknown]
  - Prescribed underdose [Unknown]
  - Underdose [Unknown]

NARRATIVE: CASE EVENT DATE: 20220424
